FAERS Safety Report 18423941 (Version 2)
Quarter: 2020Q4

REPORT INFORMATION
  Report Type: Spontaneous
  Country: AU (occurrence: AU)
  Receive Date: 20201025
  Receipt Date: 20201121
  Transmission Date: 20210114
  Serious: Yes (Other)
  Sender: FDA-Public Use
  Company Number: NVSC2020AU280427

PATIENT
  Sex: Female

DRUGS (1)
  1. TRANSIDERM NITRO [Suspect]
     Active Substance: NITROGLYCERIN
     Indication: HYPERTENSION
     Dosage: UNK (30 PATCHES)
     Route: 065

REACTIONS (8)
  - Brain neoplasm [Unknown]
  - Seizure [Unknown]
  - Noninfective gingivitis [Unknown]
  - Contraindicated product administered [Unknown]
  - Gingival pain [Unknown]
  - Product use in unapproved indication [Unknown]
  - Joint swelling [Unknown]
  - Rash [Unknown]
